FAERS Safety Report 7457568-0 (Version None)
Quarter: 2011Q2

REPORT INFORMATION
  Report Type: 
  Country: None (occurrence: None)
  Receive Date: 20110502
  Receipt Date: 20110502
  Transmission Date: 20111010
  Serious: Yes (Other)
  Sender: FDA-Public Use
  Company Number: None

PATIENT
  Sex: Female
  Weight: 86.1834 kg

DRUGS (2)
  1. VENLAFAXINE HCL EXTENDED-RELEASE [Suspect]
     Indication: GENERALISED ANXIETY DISORDER
     Dosage: 75 MG  CAPSULE QDAY PO
     Route: 048
     Dates: start: 20101110, end: 20110120
  2. VENLAFAXINE HCL EXTENDED-RELEASE [Suspect]
     Indication: GENERALISED ANXIETY DISORDER
     Dosage: 150 MG CAPSULE QDAY PO
     Route: 048
     Dates: start: 20101110, end: 20110120

REACTIONS (3)
  - IRRITABILITY [None]
  - PRODUCT SUBSTITUTION ISSUE [None]
  - DEPRESSIVE SYMPTOM [None]
